FAERS Safety Report 9846699 (Version 1)
Quarter: 2014Q1

REPORT INFORMATION
  Report Type: Spontaneous
  Country: US (occurrence: US)
  Receive Date: 20140127
  Receipt Date: 20140127
  Transmission Date: 20141002
  Serious: No
  Sender: FDA-Public Use
  Company Number: US-TEVA-458992USA

PATIENT
  Age: 36 Year
  Sex: Female
  Weight: 62.2 kg

DRUGS (5)
  1. PLAN B ONE-STEP [Suspect]
     Indication: POST COITAL CONTRACEPTION
     Dosage: 1.5 MILLIGRAM DAILY;
     Route: 048
     Dates: start: 20131013, end: 20131013
  2. PLAN B ONE-STEP [Suspect]
     Dosage: 1.5 MILLIGRAM DAILY;
     Route: 048
     Dates: start: 20131102, end: 20131102
  3. PLAN B ONE-STEP [Suspect]
     Dosage: 1.5 MILLIGRAM DAILY;
     Route: 048
     Dates: start: 20131108, end: 20131108
  4. PLAN B ONE-STEP [Suspect]
     Dosage: 1.5 MILLIGRAM DAILY;
     Route: 048
     Dates: start: 20131130, end: 20131130
  5. MONONESSA [Concomitant]
     Indication: CONTRACEPTION

REACTIONS (4)
  - Adnexa uteri pain [Recovered/Resolved]
  - Back pain [Not Recovered/Not Resolved]
  - Menstruation irregular [Recovered/Resolved]
  - Pelvic pain [Not Recovered/Not Resolved]
